FAERS Safety Report 16212351 (Version 1)
Quarter: 2019Q2

REPORT INFORMATION
  Report Type: Spontaneous
  Country: US (occurrence: US)
  Receive Date: 20190418
  Receipt Date: 20190418
  Transmission Date: 20190711
  Serious: No
  Sender: FDA-Public Use
  Company Number: US-PFIZER INC-2019134157

PATIENT
  Age: 53 Year

DRUGS (1)
  1. DILANTIN [Suspect]
     Active Substance: PHENYTOIN
     Dosage: 5 CAPS ALTERNATING WITH 6 CAPS QOD (EVERY OTHER DAY), ALTERNATE DAY

REACTIONS (2)
  - Road traffic accident [Unknown]
  - Product use issue [Unknown]
